FAERS Safety Report 7542428-7 (Version None)
Quarter: 2011Q2

REPORT INFORMATION
  Report Type: 
  Country: None (occurrence: None)
  Receive Date: 20110613
  Receipt Date: 20110228
  Transmission Date: 20111010
  Serious: No
  Sender: FDA-Public Use
  Company Number: A0915826A

PATIENT
  Age: 58 Year
  Sex: Female

DRUGS (2)
  1. NICORETTE [Suspect]
  2. NICORETTE [Suspect]

REACTIONS (2)
  - HEADACHE [None]
  - INTENTIONAL DRUG MISUSE [None]
